FAERS Safety Report 12009239 (Version 1)
Quarter: 2016Q1

REPORT INFORMATION
  Report Type: Spontaneous
  Country: US (occurrence: US)
  Receive Date: 20160205
  Receipt Date: 20160205
  Transmission Date: 20160526
  Serious: No
  Sender: FDA-Public Use
  Company Number: US-BRISTOL-MYERS SQUIBB COMPANY-BMS-2016-008276

PATIENT
  Sex: Female

DRUGS (2)
  1. ABILIFY [Suspect]
     Active Substance: ARIPIPRAZOLE
     Indication: POST-TRAUMATIC STRESS DISORDER
     Dosage: UNK
     Route: 065
     Dates: start: 200501, end: 20160201
  2. ARIPIPRAZOLE. [Suspect]
     Active Substance: ARIPIPRAZOLE
     Indication: POST-TRAUMATIC STRESS DISORDER
     Route: 065

REACTIONS (5)
  - Weight increased [Not Recovered/Not Resolved]
  - Hypotonia [Not Recovered/Not Resolved]
  - Dysstasia [Not Recovered/Not Resolved]
  - Off label use [Not Recovered/Not Resolved]
  - Muscle disorder [Not Recovered/Not Resolved]
